FAERS Safety Report 5858521-0 (Version None)
Quarter: 2008Q3

REPORT INFORMATION
  Report Type: 
  Country: None (occurrence: None)
  Receive Date: 20080818
  Receipt Date: 20080530
  Transmission Date: 20090109
  Serious: No
  Sender: FDA-Public Use
  Company Number: TPA2008A00813

PATIENT
  Sex: Male

DRUGS (2)
  1. ROZEREM [Suspect]
     Indication: INSOMNIA
     Dosage: 8 MG, QHS, PER ORAL
     Route: 048
     Dates: start: 20080501
  2. XANAX [Concomitant]

REACTIONS (4)
  - ANOREXIA [None]
  - ANXIETY [None]
  - HYPOAESTHESIA [None]
  - NEUROPATHY PERIPHERAL [None]
